FAERS Safety Report 4314388-3 (Version None)
Quarter: 2004Q1

REPORT INFORMATION
  Report Type: 
  Country: None (occurrence: None)
  Receive Date: 20040309
  Receipt Date: 20031216
  Transmission Date: 20041129
  Serious: Yes (Other)
  Sender: FDA-Public Use
  Company Number: US-GLAXOSMITHKLINE-A0443335A

PATIENT
  Age: 81 Year
  Sex: Female

DRUGS (4)
  1. AUGMENTIN [Suspect]
     Indication: ILL-DEFINED DISORDER
     Dosage: 250MG PER DAY
     Route: 048
     Dates: start: 20031215, end: 20031215
  2. ASPIRIN [Concomitant]
  3. PEPTO BISMOL [Concomitant]
  4. LOZENGE [Concomitant]

REACTIONS (2)
  - DIARRHOEA [None]
  - LOSS OF CONSCIOUSNESS [None]
